FAERS Safety Report 10475313 (Version 1)
Quarter: 2014Q3

REPORT INFORMATION
  Report Type: Spontaneous
  Country: US (occurrence: US)
  Receive Date: 20140925
  Receipt Date: 20140925
  Transmission Date: 20150326
  Serious: Yes (Disabling)
  Sender: FDA-Public Use
  Company Number: US-SUN PHARMACEUTICAL INDUSTRIES LTD-2014SUN02164

PATIENT
  Age: 33 Year
  Sex: Male
  Weight: 86.62 kg

DRUGS (5)
  1. METHAMPHETAMINE HCL [Suspect]
     Active Substance: METHAMPHETAMINE HYDROCHLORIDE
     Indication: PRODUCT USED FOR UNKNOWN INDICATION
     Route: 065
  2. TRUVADA [Suspect]
     Active Substance: EMTRICITABINE\TENOFOVIR DISOPROXIL FUMARATE
     Indication: HIV INFECTION
     Dosage: 1 DF, OD
     Route: 048
     Dates: end: 20140730
  3. OXYCODONE [Concomitant]
     Active Substance: OXYCODONE
  4. BACTRIM DS [Suspect]
     Active Substance: SULFAMETHOXAZOLE\TRIMETHOPRIM
     Indication: PRODUCT USED FOR UNKNOWN INDICATION
     Dosage: UNK
     Route: 065
     Dates: end: 20140730
  5. DOLUTEGRAVIR [Suspect]
     Active Substance: DOLUTEGRAVIR
     Indication: HIV INFECTION
     Dosage: 50 MG, OD
     Route: 048
     Dates: start: 201406, end: 20140730

REACTIONS (24)
  - Hepatitis C [Recovering/Resolving]
  - Pancreatic mass [Recovering/Resolving]
  - Lymphoma [Recovering/Resolving]
  - Liver injury [Recovering/Resolving]
  - Transaminases increased [Recovering/Resolving]
  - Liver function test abnormal [Recovering/Resolving]
  - Rash [Recovering/Resolving]
  - Splenomegaly [Recovering/Resolving]
  - Lymphadenopathy [Recovering/Resolving]
  - Pruritus [Recovering/Resolving]
  - Nausea [Recovering/Resolving]
  - Ocular icterus [Recovering/Resolving]
  - Chromaturia [Recovering/Resolving]
  - Diarrhoea [Recovering/Resolving]
  - Vomiting [Recovering/Resolving]
  - Blood bilirubin increased [Recovering/Resolving]
  - Hepatitis acute [Recovering/Resolving]
  - Pancreatitis [Recovering/Resolving]
  - Jaundice [Recovering/Resolving]
  - Faeces pale [Recovering/Resolving]
  - Hepatomegaly [Recovering/Resolving]
  - Immune reconstitution inflammatory syndrome [Recovering/Resolving]
  - Abdominal pain upper [Recovering/Resolving]
  - Drug hypersensitivity [Recovering/Resolving]

NARRATIVE: CASE EVENT DATE: 201407
